FAERS Safety Report 8621392-3 (Version None)
Quarter: 2012Q3

REPORT INFORMATION
  Report Type: 
  Country: None (occurrence: None)
  Receive Date: 20120824
  Receipt Date: 20120815
  Transmission Date: 20120928
  Serious: Yes (Hospitalization)
  Sender: FDA-Public Use
  Company Number: US-ASTRAZENECA-2012SE57936

PATIENT
  Age: 50 Year
  Sex: Female

DRUGS (4)
  1. SYMBICORT [Suspect]
     Route: 055
  2. CRESTOR [Suspect]
     Route: 048
  3. NEXIUM [Suspect]
     Route: 048
  4. SPIRIVA [Concomitant]

REACTIONS (10)
  - ABDOMINAL PAIN UPPER [None]
  - DIABETES MELLITUS [None]
  - CHEST PAIN [None]
  - LUNG DISORDER [None]
  - CARDIAC DISORDER [None]
  - GASTROOESOPHAGEAL SPHINCTER INSUFFICIENCY [None]
  - APHAGIA [None]
  - PAIN [None]
  - ANXIETY [None]
  - DRUG DOSE OMISSION [None]
